FAERS Safety Report 8676137 (Version 2)
Quarter: 2013Q4

REPORT INFORMATION
  Report Type: Spontaneous
  Country: US (occurrence: US)
  Receive Date: 20120720
  Receipt Date: 20131101
  Transmission Date: 20140711
  Serious: No
  Sender: FDA-Public Use
  Company Number: US-009507513-1207USA005339

PATIENT
  Sex: Male

DRUGS (1)
  1. COZAAR [Suspect]
     Dosage: 50 MG, BID
     Route: 048
     Dates: end: 201006

REACTIONS (3)
  - Blood pressure increased [Unknown]
  - Weight increased [Unknown]
  - Feeling abnormal [Unknown]
